FAERS Safety Report 5008969-1 (Version None)
Quarter: 2006Q2

REPORT INFORMATION
  Report Type: 
  Country: None (occurrence: None)
  Receive Date: 20060523
  Receipt Date: 20060427
  Transmission Date: 20061013
  Serious: Yes (Hospitalization)
  Sender: FDA-Public Use
  Company Number: 2006AP01998

PATIENT
  Age: 68 Year
  Sex: Female
  Weight: 48.5 kg

DRUGS (11)
  1. MEROPEN [Suspect]
     Indication: PNEUMONIA
     Route: 041
     Dates: start: 20060120, end: 20060131
  2. VEEN-D [Concomitant]
     Indication: PNEUMONIA
     Route: 041
     Dates: start: 20060120, end: 20060206
  3. VITAMEDIN [Concomitant]
     Indication: PNEUMONIA
     Route: 041
     Dates: start: 20060120, end: 20060206
  4. SOLDEM 3A [Concomitant]
     Indication: PNEUMONIA
     Route: 041
     Dates: start: 20060120, end: 20060206
  5. BISOLVON [Concomitant]
     Indication: PNEUMONIA
     Route: 042
     Dates: start: 20060120, end: 20060126
  6. SOLU-MEDROL [Concomitant]
     Indication: RESPIRATORY FAILURE
     Route: 041
     Dates: start: 20060120, end: 20060123
  7. SOLU-MEDROL [Concomitant]
     Route: 041
     Dates: start: 20060124, end: 20060126
  8. MINOCYCLINE HCL [Concomitant]
     Indication: PNEUMONIA
     Route: 041
     Dates: start: 20060121, end: 20060126
  9. LASIX [Concomitant]
     Indication: CARDIAC FAILURE
     Route: 042
     Dates: start: 20060122, end: 20060125
  10. MUCODYNE [Concomitant]
     Indication: PNEUMONIA
     Route: 048
     Dates: start: 20060125
  11. DIART [Concomitant]
     Indication: CARDIAC FAILURE
     Route: 048
     Dates: start: 20060126

REACTIONS (2)
  - C-REACTIVE PROTEIN INCREASED [None]
  - LEUKOCYTOSIS [None]
